FAERS Safety Report 6752100-9 (Version None)
Quarter: 2010Q2

REPORT INFORMATION
  Report Type: 
  Country: None (occurrence: None)
  Receive Date: 20100526
  Receipt Date: 20100329
  Transmission Date: 20101027
  Serious: No
  Sender: FDA-Public Use
  Company Number: 306358

PATIENT
  Age: 65 Year
  Sex: Female

DRUGS (2)
  1. VICTOZA [Suspect]
     Indication: TYPE 2 DIABETES MELLITUS
     Dosage: 1.6 MG, QD, SUBCUTANEOUS, 0.6 MG, QD, SUBCUTANEOUOS
     Route: 058
     Dates: start: 20100317, end: 20100323
  2. VICTOZA [Suspect]
     Indication: TYPE 2 DIABETES MELLITUS
     Dosage: 1.6 MG, QD, SUBCUTANEOUS, 0.6 MG, QD, SUBCUTANEOUOS
     Route: 058
     Dates: start: 20100324

REACTIONS (1)
  - INJECTION SITE HAEMATOMA [None]
